FAERS Safety Report 19819325 (Version 1)
Quarter: 2021Q3

REPORT INFORMATION
  Report Type: Spontaneous
  Country: US (occurrence: US)
  Receive Date: 20210913
  Receipt Date: 20210913
  Transmission Date: 20211014
  Serious: Yes (Hospitalization)
  Sender: FDA-Public Use
  Company Number: US-STRIDES ARCOLAB LIMITED-2021SP026355

PATIENT
  Age: 75 Year
  Sex: Male

DRUGS (6)
  1. CALCITONIN [Suspect]
     Active Substance: CALCITONIN
     Indication: HYPERCALCAEMIA
     Dosage: TOTAL 7 DOSES
     Route: 065
  2. PREDNISOLONE. [Suspect]
     Active Substance: PREDNISOLONE
     Indication: HYPERCALCAEMIA
     Dosage: 60 MILLIGRAM PER DAY
     Route: 065
  3. VITAMIN D NOS [Concomitant]
     Active Substance: VITAMIN D NOS
     Indication: PRODUCT USED FOR UNKNOWN INDICATION
     Dosage: 5000 INTERNATIONAL UNIT, QD, SINCE THE PAST TWO YEARS
     Route: 048
  4. ZOLEDRONIC ACID [Suspect]
     Active Substance: ZOLEDRONIC ACID
     Indication: HYPERCALCAEMIA
     Dosage: 4 MILLIGRAM
     Route: 042
  5. FUROSEMIDE. [Suspect]
     Active Substance: FUROSEMIDE
     Indication: HYPERCALCAEMIA
     Dosage: UNK
     Route: 065
  6. NORMAL SALINE [Suspect]
     Active Substance: SODIUM CHLORIDE
     Indication: HYPERCALCAEMIA
     Dosage: A TOTAL OF 63L
     Route: 042

REACTIONS (3)
  - Rebound effect [Recovered/Resolved]
  - Off label use [Unknown]
  - Drug ineffective [Unknown]
